FAERS Safety Report 26074073 (Version 1)
Quarter: 2025Q4

REPORT INFORMATION
  Report Type: Spontaneous
  Country: EU (occurrence: EU)
  Receive Date: 20251121
  Receipt Date: 20251121
  Transmission Date: 20260118
  Serious: Yes (Life-Threatening, Congenital Anomaly)
  Sender: BAUSCH AND LOMB
  Company Number: None

PATIENT
  Sex: Female

DRUGS (9)
  1. DIAZEPAM [Suspect]
     Active Substance: DIAZEPAM
     Indication: Prophylaxis against alcoholic withdrawal syndrome
     Route: 064
     Dates: start: 20240915, end: 20250512
  2. DIAZEPAM [Suspect]
     Active Substance: DIAZEPAM
     Dosage: DOSE RE-INTRODUCED
     Route: 065
  3. KETAMINE [Suspect]
     Active Substance: KETAMINE
     Indication: Drug abuse
     Route: 064
     Dates: start: 20240915, end: 20250512
  4. KETAMINE [Suspect]
     Active Substance: KETAMINE
     Dosage: DOSE RE-INTRODUCED
     Route: 065
  5. HYDROXYZINE HYDROCHLORIDE [Suspect]
     Active Substance: HYDROXYZINE HYDROCHLORIDE
     Indication: Product used for unknown indication
     Route: 064
     Dates: end: 20250512
  6. HYDROXYZINE HYDROCHLORIDE [Suspect]
     Active Substance: HYDROXYZINE HYDROCHLORIDE
     Dosage: DOSE RE-INTRODUCED
     Route: 065
  7. OMEPRAZOLE [Suspect]
     Active Substance: OMEPRAZOLE
     Indication: Gastrooesophageal reflux disease
     Route: 064
     Dates: end: 20250509
  8. OMEPRAZOLE [Suspect]
     Active Substance: OMEPRAZOLE
     Dosage: DOSE RE-INTRODUCED
     Route: 065
  9. INSULIN NOS [Concomitant]
     Active Substance: INSULIN NOS
     Indication: Product used for unknown indication

REACTIONS (4)
  - Hydrops foetalis [Recovered/Resolved]
  - Premature baby [Recovering/Resolving]
  - Otospondylomegaepiphyseal dysplasia [Recovering/Resolving]
  - Maternal exposure during pregnancy [Recovered/Resolved]

NARRATIVE: CASE EVENT DATE: 20240915
